FAERS Safety Report 21186463 (Version 3)
Quarter: 2024Q4

REPORT INFORMATION
  Report Type: Report from Study
  Country: US (occurrence: US)
  Receive Date: 20220808
  Receipt Date: 20241010
  Transmission Date: 20250115
  Serious: Yes (Hospitalization, Other)
  Sender: TAKEDA
  Company Number: US-TAKEDA-2022TUS052624

PATIENT
  Age: 70 Year
  Sex: Male

DRUGS (2)
  1. RECOMBINATE [Suspect]
     Active Substance: ANTIHEMOPHILIC FACTOR, HUMAN RECOMBINANT
     Indication: Product used for unknown indication
     Dosage: 3500 INTERNATIONAL UNIT
     Route: 042
  2. RECOMBINATE [Suspect]
     Active Substance: ANTIHEMOPHILIC FACTOR, HUMAN RECOMBINANT
     Dosage: 3498 INTERNATIONAL UNIT
     Route: 050

REACTIONS (4)
  - Coagulopathy [Unknown]
  - Skin ulcer haemorrhage [Unknown]
  - Scab [Unknown]
  - Recalled product [Unknown]

NARRATIVE: CASE EVENT DATE: 20220801
